FAERS Safety Report 5450936-8 (Version None)
Quarter: 2007Q3

REPORT INFORMATION
  Report Type: 
  Country: None (occurrence: None)
  Receive Date: 20070911
  Receipt Date: 20070904
  Transmission Date: 20080115
  Serious: Yes (Death, Life-Threatening, Hospitalization)
  Sender: FDA-Public Use
  Company Number: 163-21880-07080313

PATIENT
  Age: 65 Year
  Sex: Male
  Weight: 57.0625 kg

DRUGS (12)
  1. REVLIMID [Suspect]
     Indication: THYROID CANCER
     Dosage: 25 MG, DAILY, ORAL
     Route: 048
     Dates: start: 20060418, end: 20070718
  2. TUMS (CALCIUM CARBONATE) [Concomitant]
  3. CALCITRIOL [Concomitant]
  4. ATENOLOL [Concomitant]
  5. TESTOSTERONE ENANTHATE (TESTOSTERONE ENANTATE) [Concomitant]
  6. SYNTHROID [Concomitant]
  7. VIAGRA [Concomitant]
  8. TUSSIONEX PENNKINETTC (TUSSIONEX PENNKINETIC) [Concomitant]
  9. GUAIFENESIN (GUAIFENESIN) (SYRUP) [Concomitant]
  10. ASPIRIN TAB [Concomitant]
  11. IBUPROFEN [Concomitant]
  12. ROBITUSSIN DM (ROBITUSSIN-DM) [Concomitant]

REACTIONS (3)
  - EMBOLISM VENOUS [None]
  - PULMONARY EMBOLISM [None]
  - RESPIRATORY FAILURE [None]
